FAERS Safety Report 9280710 (Version 2)
Quarter: 2013Q2

REPORT INFORMATION
  Report Type: Report from Study
  Country: FR (occurrence: FR)
  Receive Date: 20130509
  Receipt Date: 20130524
  Transmission Date: 20140414
  Serious: Yes (Death, Hospitalization, Other)
  Sender: FDA-Public Use
  Company Number: FR-PFIZER INC-2013139246

PATIENT
  Age: 69 Year
  Sex: Male
  Weight: 85 kg

DRUGS (3)
  1. TORISEL [Suspect]
     Indication: MANTLE CELL LYMPHOMA
     Dosage: 175 MG, WEEKLY
     Dates: start: 20111110, end: 20111110
  2. TORISEL [Suspect]
     Dosage: 175 MG, WEEKLY
     Dates: start: 20111122, end: 20111129
  3. TORISEL [Suspect]
     Dosage: 75 MG, WEEKLY
     Dates: start: 20111206, end: 20111213

REACTIONS (10)
  - Disease progression [Fatal]
  - Mantle cell lymphoma [Fatal]
  - Cellulitis [Fatal]
  - Eyelid oedema [Fatal]
  - Sinusitis [Fatal]
  - Neutropenia [Unknown]
  - Cough [Unknown]
  - Sinus headache [Unknown]
  - Epistaxis [Unknown]
  - Thrombocytopenia [Unknown]
